FAERS Safety Report 6911851-3 (Version None)
Quarter: 2010Q3

REPORT INFORMATION
  Report Type: 
  Country: None (occurrence: None)
  Receive Date: 20100806
  Receipt Date: 20070709
  Transmission Date: 20110219
  Serious: No
  Sender: FDA-Public Use
  Company Number: US-PFIZER INC-2007056744

PATIENT
  Sex: Male
  Weight: 63 kg

DRUGS (6)
  1. VFEND [Suspect]
     Indication: NOCARDIOSIS
     Route: 048
     Dates: start: 20070424
  2. BACTRIM DS [Suspect]
     Indication: NOCARDIOSIS
     Route: 048
     Dates: start: 20070424
  3. MUCINEX [Concomitant]
     Route: 048
  4. FUROSEMIDE [Concomitant]
     Route: 048
  5. POTASSIUM [Concomitant]
  6. ALL OTHER THERAPEUTIC PRODUCTS [Concomitant]

REACTIONS (1)
  - MYALGIA [None]
